FAERS Safety Report 7263413-9 (Version None)
Quarter: 2011Q1

REPORT INFORMATION
  Report Type: 
  Country: None (occurrence: None)
  Receive Date: 20110130
  Receipt Date: 20101105
  Transmission Date: 20110831
  Serious: No
  Sender: FDA-Public Use
  Company Number: US-ABBOTT-10P-163-0683817-00

PATIENT
  Sex: Female

DRUGS (4)
  1. HUMIRA [Suspect]
     Indication: RHEUMATOID ARTHRITIS
     Dates: start: 20060601, end: 20100901
  2. HUMIRA [Suspect]
     Dates: start: 20100901
  3. LEVAQUIN [Suspect]
     Indication: SINUSITIS
     Dates: start: 20100601, end: 20100601
  4. ADVIL [Concomitant]
     Indication: RHEUMATOID ARTHRITIS

REACTIONS (4)
  - PAIN IN EXTREMITY [None]
  - LOCAL SWELLING [None]
  - SINUSITIS [None]
  - TENDONITIS [None]
